FAERS Safety Report 16260541 (Version 1)
Quarter: 2019Q2

REPORT INFORMATION
  Report Type: Spontaneous
  Country: US (occurrence: US)
  Receive Date: 20190430
  Receipt Date: 20190430
  Transmission Date: 20190711
  Serious: Yes (Hospitalization)
  Sender: FDA-Public Use
  Company Number: None

PATIENT
  Age: 62 Year
  Sex: Female

DRUGS (5)
  1. ALLERGRA ALLERGY 180 MG TABLETS [Concomitant]
     Dates: start: 20190326
  2. FEROSUL 325 MG TABLETS [Concomitant]
     Dates: start: 20190405
  3. VITAMIN D 50000 UNITS CAPSULE [Concomitant]
     Dates: start: 20190118
  4. PREDNISONE 5 MG TABLETS [Concomitant]
     Dates: start: 20190405
  5. HUMIRA [Suspect]
     Active Substance: ADALIMUMAB
     Indication: CROHN^S DISEASE
     Dosage: ?          OTHER FREQUENCY:EVERY OTHER WEEK;?
     Route: 058

REACTIONS (2)
  - Paraesthesia [None]
  - Balance disorder [None]

NARRATIVE: CASE EVENT DATE: 20190429
